FAERS Safety Report 5614171-2 (Version None)
Quarter: 2008Q1

REPORT INFORMATION
  Report Type: 
  Country: None (occurrence: None)
  Receive Date: 20080205
  Receipt Date: 20080201
  Transmission Date: 20080703
  Serious: Yes (Hospitalization, Disabling)
  Sender: FDA-Public Use
  Company Number: B0498270A

PATIENT
  Age: 79 Year
  Sex: Female
  Weight: 44 kg

DRUGS (3)
  1. ARIXTRA [Suspect]
     Indication: THROMBOSIS PROPHYLAXIS
     Dosage: 2.5MG PER DAY
     Route: 058
     Dates: start: 20071121, end: 20071129
  2. PETHILORFAN [Concomitant]
     Indication: PREMEDICATION
     Dosage: 50MG PER DAY
     Route: 042
     Dates: start: 20071119, end: 20071119
  3. UNKNOWN DRUG [Concomitant]
     Indication: INFECTION PROPHYLAXIS
     Dosage: 2G PER DAY
     Route: 042
     Dates: start: 20071119, end: 20071121

REACTIONS (3)
  - HYPOKINESIA [None]
  - MONOPLEGIA [None]
  - SUBDURAL HAEMATOMA [None]
